FAERS Safety Report 20205009 (Version 1)
Quarter: 2021Q4

REPORT INFORMATION
  Report Type: Report from Study
  Country: US (occurrence: US)
  Receive Date: 20211220
  Receipt Date: 20211220
  Transmission Date: 20220303
  Serious: No
  Sender: FDA-Public Use
  Company Number: US-NOVARTISTESTPH-NVSC2021US290033

PATIENT
  Sex: Female

DRUGS (2)
  1. TABRECTA [Suspect]
     Active Substance: CAPMATINIB
     Indication: Lung neoplasm malignant
     Dosage: 400 MG, ONCE2SDO
     Route: 048
     Dates: start: 20211116
  2. TABRECTA [Suspect]
     Active Substance: CAPMATINIB
     Dosage: 200 MG DOSE REDUCED
     Route: 065

REACTIONS (2)
  - Illness [Unknown]
  - Vomiting [Recovered/Resolved]
